FAERS Safety Report 6821517-6 (Version None)
Quarter: 2010Q3

REPORT INFORMATION
  Report Type: 
  Country: None (occurrence: None)
  Receive Date: 20100707
  Receipt Date: 20081114
  Transmission Date: 20110219
  Serious: No
  Sender: FDA-Public Use
  Company Number: US-PFIZER INC-2008096958

PATIENT
  Sex: Male
  Weight: 180.9 kg

DRUGS (5)
  1. ZOLOFT [Suspect]
     Indication: ANXIETY
     Dates: start: 20081101
  2. XANAX [Suspect]
     Indication: INSOMNIA
     Dates: start: 20081101
  3. SYNTHROID [Concomitant]
  4. DIOVANE [Concomitant]
  5. GLUCOTROL [Concomitant]

REACTIONS (2)
  - FEELING COLD [None]
  - INSOMNIA [None]
